FAERS Safety Report 4730952-1 (Version None)
Quarter: 2005Q3

REPORT INFORMATION
  Report Type: 
  Country: None (occurrence: None)
  Receive Date: 20050719
  Receipt Date: 20040630
  Transmission Date: 20060218
  Serious: Yes (Hospitalization)
  Sender: FDA-Public Use
  Company Number: 200705

PATIENT
  Age: 61 Year
  Sex: Female
  Weight: 77.1115 kg

DRUGS (7)
  1. AVONEX [Suspect]
     Indication: MULTIPLE SCLEROSIS
     Dosage: 30 UG; QW; IM
     Route: 030
     Dates: start: 20040426, end: 20040701
  2. PREMARIN [Concomitant]
  3. XANAX [Concomitant]
  4. PROZAC [Concomitant]
  5. LEVOXYL [Concomitant]
  6. BENTYL [Concomitant]
  7. LORTAB [Concomitant]

REACTIONS (4)
  - ANXIETY [None]
  - DYSPHAGIA [None]
  - DYSPNOEA [None]
  - MIGRAINE [None]
